FAERS Safety Report 4604250-0 (Version None)
Quarter: 2005Q2

REPORT INFORMATION
  Report Type: 
  Country: None (occurrence: None)
  Receive Date: 20050214
  Receipt Date: 20041018
  Transmission Date: 20051028
  Serious: No
  Sender: FDA-Public Use
  Company Number: USA040874640

PATIENT
  Age: 64 Year
  Sex: Male

DRUGS (9)
  1. CIALIS [Suspect]
     Indication: ERECTILE DYSFUNCTION
     Dosage: 20 MG
     Dates: start: 20040601
  2. LANOXIN [Concomitant]
  3. HYTRIN [Concomitant]
  4. LOPID [Concomitant]
  5. ASPIRIN [Concomitant]
  6. TAMBOCOR [Concomitant]
  7. NEURONTIN [Concomitant]
  8. CLARINEX   /USA/ (DESLORATADINE) [Concomitant]
  9. FLONASE [Concomitant]

REACTIONS (2)
  - NIPPLE PAIN [None]
  - NIPPLE SWELLING [None]
